FAERS Safety Report 4285891-X (Version None)
Quarter: 2004Q1

REPORT INFORMATION
  Report Type: 
  Country: None (occurrence: None)
  Receive Date: 20040204
  Receipt Date: 20040204
  Transmission Date: 20041129
  Serious: Yes (Other)
  Sender: FDA-Public Use
  Company Number: None

PATIENT
  Age: 29 Year
  Sex: Male
  Weight: 69.8539 kg

DRUGS (1)
  1. LEXIVA [Suspect]
     Indication: HIV INFECTION
     Dosage: 1400 MGS TWICE DAIL ORAL
     Route: 048
     Dates: start: 20040122, end: 20040202

REACTIONS (1)
  - RASH MACULO-PAPULAR [None]
